FAERS Safety Report 24387894 (Version 1)
Quarter: 2024Q4

REPORT INFORMATION
  Report Type: Spontaneous
  Country: US (occurrence: US)
  Receive Date: 20241002
  Receipt Date: 20241002
  Transmission Date: 20250115
  Serious: No
  Sender: MAYNE
  Company Number: US-MAYNE PHARMA-2024MYN000384

PATIENT

DRUGS (1)
  1. ANNOVERA [Suspect]
     Active Substance: ETHINYL ESTRADIOL\SEGESTERONE ACETATE
     Indication: Product used for unknown indication
     Route: 067

REACTIONS (2)
  - Intermenstrual bleeding [Unknown]
  - Off label use [Unknown]
